FAERS Safety Report 10132349 (Version 3)
Quarter: 2014Q2

REPORT INFORMATION
  Report Type: Report from Study
  Country: CA (occurrence: CA)
  Receive Date: 20140428
  Receipt Date: 20140507
  Transmission Date: 20141212
  Serious: Yes (Hospitalization, Other)
  Sender: FDA-Public Use
  Company Number: CA-ABBVIE-14K-028-1224567-00

PATIENT
  Sex: Female
  Weight: 56.75 kg

DRUGS (3)
  1. HUMIRA [Suspect]
     Indication: RHEUMATOID ARTHRITIS
     Route: 058
     Dates: start: 20050914, end: 20140219
  2. HUMIRA [Suspect]
     Route: 058
  3. CORTISONE [Concomitant]
     Indication: PRODUCT USED FOR UNKNOWN INDICATION

REACTIONS (11)
  - Hypotension [Not Recovered/Not Resolved]
  - Dyspnoea [Recovering/Resolving]
  - Influenza [Recovering/Resolving]
  - Lower respiratory tract infection [Recovering/Resolving]
  - Nasopharyngitis [Recovering/Resolving]
  - Bone disorder [Recovering/Resolving]
  - Abasia [Not Recovered/Not Resolved]
  - Sinus congestion [Recovering/Resolving]
  - Impaired healing [Not Recovered/Not Resolved]
  - Type 2 diabetes mellitus [Not Recovered/Not Resolved]
  - Condition aggravated [Unknown]
